FAERS Safety Report 16324803 (Version 3)
Quarter: 2022Q1

REPORT INFORMATION
  Report Type: Other
  Country: NL (occurrence: NL)
  Receive Date: 20190517
  Receipt Date: 20220331
  Transmission Date: 20220424
  Serious: No
  Sender: FDA-Public Use
  Company Number: PHHY2019NL111436

PATIENT
  Age: 86 Year
  Sex: Male

DRUGS (1)
  1. LEUPROLIDE ACETATE [Suspect]
     Active Substance: LEUPROLIDE ACETATE
     Indication: Prostate cancer
     Dosage: 30 MG, (EVERY 6MONTHS)
     Route: 058
     Dates: start: 20131218

REACTIONS (1)
  - No adverse event [Unknown]
